FAERS Safety Report 6342523-4 (Version None)
Quarter: 2009Q3

REPORT INFORMATION
  Report Type: 
  Country: None (occurrence: None)
  Receive Date: 20090908
  Receipt Date: 20051114
  Transmission Date: 20100115
  Serious: No
  Sender: FDA-Public Use
  Company Number: JP-ROCHE-425973

PATIENT
  Sex: Female
  Weight: 3.3 kg

DRUGS (2)
  1. OSELTAMIVIR [Suspect]
     Dates: start: 20050221, end: 20050223
  2. HERBAL EXTRACTS NOS [Concomitant]
     Dosage: DRUG REPORTED AS SHOUSEI RYUUTO (HERBAL MEDICINES).
     Dates: start: 20050221, end: 20050226

REACTIONS (1)
  - NORMAL NEWBORN [None]
